FAERS Safety Report 6342537-4 (Version None)
Quarter: 2009Q3

REPORT INFORMATION
  Report Type: 
  Country: None (occurrence: None)
  Receive Date: 20090908
  Receipt Date: 20060828
  Transmission Date: 20100115
  Serious: No
  Sender: FDA-Public Use
  Company Number: JP-ROCHE-423414

PATIENT
  Sex: Male
  Weight: 2.9 kg

DRUGS (5)
  1. OSELTAMIVIR [Suspect]
     Indication: INFLUENZA
     Dates: start: 20050222, end: 20050226
  2. MUCODYNE [Concomitant]
     Dates: start: 20050222, end: 20050226
  3. SEKINARIN [Concomitant]
     Dates: start: 20050222, end: 20050226
  4. ASTOMIN [Concomitant]
     Dates: start: 20050222, end: 20050226
  5. CALONAL [Concomitant]
     Dosage: AS NEEDED
     Dates: start: 20050222, end: 20060226

REACTIONS (2)
  - DRUG EXPOSURE DURING PREGNANCY [None]
  - NORMAL NEWBORN [None]
